FAERS Safety Report 21754919 (Version 2)
Quarter: 2022Q4

REPORT INFORMATION
  Report Type: Report from Study
  Country: CA (occurrence: CA)
  Receive Date: 20221220
  Receipt Date: 20221229
  Transmission Date: 20230113
  Serious: Yes (Other)
  Sender: FDA-Public Use
  Company Number: CA-KOREA IPSEN Pharma-2022-26239

PATIENT
  Age: 58 Year
  Sex: Female

DRUGS (5)
  1. LANREOTIDE ACETATE [Suspect]
     Active Substance: LANREOTIDE ACETATE
     Indication: Neuroendocrine tumour
     Dosage: 120 MG
     Route: 058
     Dates: start: 20200811
  2. ASPIRIN [Concomitant]
     Active Substance: ASPIRIN
     Dosage: BABY ASA DAILY
  3. CHOLESTYRAMINE [Concomitant]
     Active Substance: CHOLESTYRAMINE
     Indication: Bowel movement irregularity
  4. CHOLESTYRAMINE [Concomitant]
     Active Substance: CHOLESTYRAMINE
     Indication: Nausea
  5. VANCOMYCIN [Concomitant]
     Active Substance: VANCOMYCIN

REACTIONS (19)
  - Loss of consciousness [Not Recovered/Not Resolved]
  - Vomiting [Not Recovered/Not Resolved]
  - Malaise [Not Recovered/Not Resolved]
  - Anxiety [Unknown]
  - Blood pressure increased [Recovering/Resolving]
  - Respiratory rate increased [Unknown]
  - Diarrhoea [Unknown]
  - Asthenia [Unknown]
  - Feeling abnormal [Unknown]
  - Contusion [Not Recovered/Not Resolved]
  - Hypertension [Unknown]
  - Nausea [Not Recovered/Not Resolved]
  - Bowel movement irregularity [Not Recovered/Not Resolved]
  - Gait disturbance [Unknown]
  - Fall [Not Recovered/Not Resolved]
  - COVID-19 [Not Recovered/Not Resolved]
  - Pallor [Not Recovered/Not Resolved]
  - Hypotension [Unknown]
  - Malaise [Unknown]

NARRATIVE: CASE EVENT DATE: 20220909
